FAERS Safety Report 4298536-X (Version None)
Quarter: 2004Q1

REPORT INFORMATION
  Report Type: 
  Country: None (occurrence: None)
  Receive Date: 20040218
  Receipt Date: 20040128
  Transmission Date: 20041129
  Serious: Yes (Hospitalization)
  Sender: FDA-Public Use
  Company Number: DE-BRISTOL-MYERS SQUIBB COMPANY-12490470

PATIENT
  Age: 67 Year
  Sex: Female
  Weight: 70 kg

DRUGS (2)
  1. TAXOL [Suspect]
     Indication: OVARIAN CANCER
     Dosage: FIRST COURSE ON 02-JAN-2004
     Route: 042
     Dates: start: 20040123, end: 20040123
  2. RIBOCARBO [Suspect]
     Indication: OVARIAN CANCER
     Dosage: FIRST COURSE ON 02-JAN-2004
     Route: 042
     Dates: start: 20040123, end: 20040123

REACTIONS (1)
  - ACUTE PSYCHOSIS [None]
